FAERS Safety Report 25224478 (Version 2)
Quarter: 2025Q2

REPORT INFORMATION
  Report Type: Spontaneous
  Country: CY (occurrence: CY)
  Receive Date: 20250422
  Receipt Date: 20250430
  Transmission Date: 20250716
  Serious: Yes (Life-Threatening)
  Sender: NOVARTIS
  Company Number: None

PATIENT
  Age: 66 Year
  Sex: Female
  Weight: 58 kg

DRUGS (1)
  1. PIQRAY [Suspect]
     Active Substance: ALPELISIB
     Indication: Gastrointestinal stromal tumour
     Route: 065
     Dates: start: 202405, end: 202405

REACTIONS (2)
  - Stevens-Johnson syndrome [Unknown]
  - Rash [Unknown]

NARRATIVE: CASE EVENT DATE: 20240502
